FAERS Safety Report 16250495 (Version 2)
Quarter: 2019Q3

REPORT INFORMATION
  Report Type: Spontaneous
  Country: US (occurrence: US)
  Receive Date: 20190429
  Receipt Date: 20190925
  Transmission Date: 20191004
  Serious: No
  Sender: FDA-Public Use
  Company Number: US-PFIZER INC-2019174812

PATIENT
  Age: 5 Year
  Sex: Female

DRUGS (1)
  1. CHILDRENS ADVIL [Suspect]
     Active Substance: IBUPROFEN
     Indication: PYREXIA
     Dosage: 7.5 ML, UNK
     Route: 048
     Dates: start: 20190416, end: 20190417

REACTIONS (3)
  - Discomfort [Recovering/Resolving]
  - Flatulence [Recovering/Resolving]
  - Limb discomfort [Unknown]
